FAERS Safety Report 21253597 (Version 1)
Quarter: 2022Q3

REPORT INFORMATION
  Report Type: Spontaneous
  Country: GR (occurrence: GR)
  Receive Date: 20220825
  Receipt Date: 20220825
  Transmission Date: 20221027
  Serious: Yes (Death, Hospitalization)
  Sender: FDA-Public Use
  Company Number: GR-PFIZER INC-PV202200048663

PATIENT
  Age: 86 Year
  Sex: Male

DRUGS (1)
  1. PAXLOVID [Suspect]
     Active Substance: NIRMATRELVIR\RITONAVIR
     Indication: COVID-19
     Dosage: UNK
     Route: 048
     Dates: start: 202208, end: 202208

REACTIONS (2)
  - Cardiac disorder [Fatal]
  - Syncope [Unknown]

NARRATIVE: CASE EVENT DATE: 20220801
